FAERS Safety Report 19460725 (Version 1)
Quarter: 2021Q2

REPORT INFORMATION
  Report Type: Spontaneous
  Country: GB (occurrence: GB)
  Receive Date: 20210625
  Receipt Date: 20210625
  Transmission Date: 20210717
  Serious: Yes (Hospitalization, Disabling)
  Sender: FDA-Public Use
  Company Number: GB-TEVA-2021-GB-1924722

PATIENT
  Age: 45 Year
  Sex: Male

DRUGS (4)
  1. PROPOFOL. [Concomitant]
     Active Substance: PROPOFOL
  2. VERAPAMIL [Concomitant]
     Active Substance: VERAPAMIL HYDROCHLORIDE
     Indication: PROPHYLAXIS
     Dosage: 240 MILLIGRAM DAILY;
  3. SUMATRIPTAN. [Suspect]
     Active Substance: SUMATRIPTAN
     Route: 045
  4. SUMATRIPTAN. [Suspect]
     Active Substance: SUMATRIPTAN
     Route: 058
     Dates: start: 20210614

REACTIONS (2)
  - Cluster headache [Not Recovered/Not Resolved]
  - Cluster headache [Not Recovered/Not Resolved]

NARRATIVE: CASE EVENT DATE: 20210526
